FAERS Safety Report 7961819-3 (Version None)
Quarter: 2011Q4

REPORT INFORMATION
  Report Type: 
  Country: None (occurrence: None)
  Receive Date: 20111207
  Receipt Date: 20111207
  Transmission Date: 20120403
  Serious: Yes (Hospitalization)
  Sender: FDA-Public Use
  Company Number: None

PATIENT
  Age: 64 Year
  Sex: Female

DRUGS (1)
  1. INDIGO CARMINE [Suspect]
     Indication: BIOPSY LYMPH GLAND
     Dates: start: 20110207, end: 20110207

REACTIONS (3)
  - PULMONARY OEDEMA [None]
  - CARDIAC ENZYMES INCREASED [None]
  - PNEUMOTHORAX [None]
